FAERS Safety Report 20949297 (Version 1)
Quarter: 2022Q2

REPORT INFORMATION
  Report Type: Report from Study
  Country: US (occurrence: US)
  Receive Date: 20220613
  Receipt Date: 20220613
  Transmission Date: 20220720
  Serious: No
  Sender: FDA-Public Use
  Company Number: US-NOVARTISTESTPH-NVSC2022US134317

PATIENT
  Age: 40 Year
  Sex: Female

DRUGS (1)
  1. NAPROXEN [Suspect]
     Active Substance: NAPROXEN
     Indication: Tendon disorder
     Dosage: UNK
     Route: 048

REACTIONS (5)
  - Paraesthesia [Unknown]
  - Arthralgia [Unknown]
  - Hypokinesia [Unknown]
  - Pain [Unknown]
  - Drug ineffective [Unknown]
